FAERS Safety Report 12337800 (Version 1)
Quarter: 2016Q2

REPORT INFORMATION
  Report Type: Spontaneous
  Country: US (occurrence: US)
  Receive Date: 20160505
  Receipt Date: 20160505
  Transmission Date: 20160815
  Serious: Yes (Other)
  Sender: FDA-Public Use
  Company Number: US-BAYER-2016-083625

PATIENT
  Sex: Female

DRUGS (1)
  1. MIRENA [Suspect]
     Active Substance: LEVONORGESTREL
     Indication: CONTRACEPTION
     Dosage: 20 MCG/24HR, CONT
     Route: 015

REACTIONS (9)
  - Foetal death [None]
  - Drug ineffective [None]
  - Intrauterine infection [None]
  - Pregnancy with contraceptive device [None]
  - Device dislocation [None]
  - Device difficult to use [None]
  - Amniotic cavity infection [None]
  - Premature rupture of membranes [None]
  - Premature delivery [None]
